FAERS Safety Report 5139912-2 (Version None)
Quarter: 2006Q4

REPORT INFORMATION
  Report Type: 
  Country: None (occurrence: None)
  Receive Date: 20061026
  Receipt Date: 20061026
  Transmission Date: 20070319
  Serious: Yes (Hospitalization)
  Sender: FDA-Public Use
  Company Number: None

PATIENT
  Age: 59 Year
  Sex: Male

DRUGS (2)
  1. CIPROFLOXACIN [Suspect]
     Indication: DIVERTICULITIS
     Dates: start: 20060601
  2. METRONIDAZOLE [Suspect]

REACTIONS (3)
  - CELLULITIS [None]
  - CLOSTRIDIUM DIFFICILE TOXIN TEST POSITIVE [None]
  - DIVERTICULUM [None]
